FAERS Safety Report 9892453 (Version 2)
Quarter: 2014Q2

REPORT INFORMATION
  Report Type: Spontaneous
  Country: US (occurrence: US)
  Receive Date: 20140212
  Receipt Date: 20140620
  Transmission Date: 20141212
  Serious: Yes (Hospitalization, Other)
  Sender: FDA-Public Use
  Company Number: US-009507513-1402USA005941

PATIENT
  Sex: Female

DRUGS (1)
  1. NUVARING [Suspect]
     Route: 067

REACTIONS (10)
  - Protein S deficiency [Unknown]
  - Superior sagittal sinus thrombosis [Recovering/Resolving]
  - Migraine [Unknown]
  - Anticoagulation drug level below therapeutic [Recovered/Resolved]
  - Protein C deficiency [Unknown]
  - Headache [Unknown]
  - Hypertension [Unknown]
  - Generalised tonic-clonic seizure [Unknown]
  - Hyperkalaemia [Unknown]
  - Hypokalaemia [Recovered/Resolved]
